FAERS Safety Report 4365393-2 (Version None)
Quarter: 2004Q2

REPORT INFORMATION
  Report Type: 
  Country: None (occurrence: None)
  Receive Date: 20040525
  Receipt Date: 20040512
  Transmission Date: 20050107
  Serious: Yes (Disabling)
  Sender: FDA-Public Use
  Company Number: UKP04000186

PATIENT
  Age: 42 Year
  Sex: Male

DRUGS (2)
  1. ASACOL [Suspect]
     Indication: COLITIS ULCERATIVE
     Dosage: 400 MG, DAILY,ORAL
     Route: 048
     Dates: start: 20010101, end: 20040101
  2. AZATHIOPRINE [Concomitant]

REACTIONS (2)
  - ECZEMA [None]
  - PHOTOSENSITIVE RASH [None]
